FAERS Safety Report 6202983-6 (Version None)
Quarter: 2009Q2

REPORT INFORMATION
  Report Type: 
  Country: None (occurrence: None)
  Receive Date: 20090526
  Receipt Date: 20090518
  Transmission Date: 20091009
  Serious: Yes (Disabling)
  Sender: FDA-Public Use
  Company Number: FR-GILEAD-2009-0022067

PATIENT

DRUGS (3)
  1. HEPSERA [Suspect]
     Route: 064
  2. VIREAD [Suspect]
     Route: 064
  3. ZEFFIX [Suspect]
     Route: 064

REACTIONS (3)
  - DEVELOPMENTAL DELAY [None]
  - MENTAL DISORDER [None]
  - MOTOR DYSFUNCTION [None]
